FAERS Safety Report 17150014 (Version 1)
Quarter: 2019Q4

REPORT INFORMATION
  Report Type: Report from Study
  Country: CA (occurrence: CA)
  Receive Date: 20191213
  Receipt Date: 20191213
  Transmission Date: 20200122
  Serious: Yes (Other)
  Sender: FDA-Public Use
  Company Number: CA-SUN PHARMACEUTICAL INDUSTRIES LTD-2019RR-230567

PATIENT

DRUGS (4)
  1. VINCRISTINE [Concomitant]
     Active Substance: VINCRISTINE
     Dosage: 0.05 MILLIGRAM/KILOGRAM/DOSE FOR THE SUBSEQUENT CYCLES
     Route: 065
  2. ETOPOSIDE. [Concomitant]
     Active Substance: ETOPOSIDE
     Indication: PRODUCT USED FOR UNKNOWN INDICATION
     Dosage: 12 MILLIGRAM/KILOGRAM/DOSE, 7 CYCLES
     Route: 065
  3. CARBOPLATIN. [Suspect]
     Active Substance: CARBOPLATIN
     Indication: RETINOBLASTOMA
     Dosage: 28 MILLIGRAM/KILOGRAM/DOSE, 7 CYCLES
     Route: 065
  4. VINCRISTINE [Concomitant]
     Active Substance: VINCRISTINE
     Indication: PRODUCT USED FOR UNKNOWN INDICATION
     Dosage: 0.025 MILLIGRAM/KILOGRAM/DOSE FOR THE FIRST CYCLE
     Route: 065

REACTIONS (2)
  - Ototoxicity [Unknown]
  - Deafness [Unknown]
